FAERS Safety Report 10398051 (Version 2)
Quarter: 2014Q4

REPORT INFORMATION
  Report Type: Spontaneous
  Country: DK (occurrence: None)
  Receive Date: 20140818
  Receipt Date: 20141229
  Transmission Date: 20150528
  Serious: Yes (Hospitalization, Disabling)
  Sender: FDA-Public Use
  Company Number: 2014223738

PATIENT
  Age: 62 Year
  Sex: Male

DRUGS (1)
  1. FRAGMIN [Suspect]
     Active Substance: DALTEPARIN SODIUM
     Indication: ANTICOAGULANT THERAPY
     Dates: start: 201202, end: 201202

REACTIONS (10)
  - Joint dislocation [None]
  - Staphylococcus test positive [None]
  - Mobility decreased [None]
  - Haematoma infection [None]
  - Arthralgia [None]
  - Haematoma [None]
  - Peripheral swelling [None]
  - Pain [None]
  - Post procedural complication [None]
  - Walking disability [None]

NARRATIVE: CASE EVENT DATE: 20130304
